FAERS Safety Report 9796751 (Version 2)
Quarter: 2014Q1

REPORT INFORMATION
  Report Type: Spontaneous
  Country: US (occurrence: US)
  Receive Date: 20140103
  Receipt Date: 20140311
  Transmission Date: 20141002
  Serious: Yes (Hospitalization)
  Sender: FDA-Public Use
  Company Number: US-UCBSA-107844

PATIENT
  Age: 49 Year
  Sex: Male
  Weight: 80.7 kg

DRUGS (3)
  1. CIMZIA [Suspect]
     Indication: CROHN^S DISEASE
     Dates: start: 20080911
  2. CIMZIA [Suspect]
     Indication: CROHN^S DISEASE
  3. CIMZIA [Suspect]
     Indication: CROHN^S DISEASE
     Dates: start: 20131022

REACTIONS (2)
  - Obstruction [Not Recovered/Not Resolved]
  - Abdominal pain [Recovered/Resolved]
